FAERS Safety Report 5128673-9 (Version None)
Quarter: 2006Q4

REPORT INFORMATION
  Report Type: 
  Country: None (occurrence: None)
  Receive Date: 20061011
  Receipt Date: 20060927
  Transmission Date: 20070319
  Serious: Yes (Other)
  Sender: FDA-Public Use
  Company Number: 230558

PATIENT
  Sex: 0

DRUGS (1)
  1. RAPTIVA [Suspect]
     Indication: DRUG USE FOR UNKNOWN INDICATION

REACTIONS (2)
  - PARAPSORIASIS [None]
  - T-CELL LYMPHOMA [None]
